FAERS Safety Report 4556750-X (Version None)
Quarter: 2005Q1

REPORT INFORMATION
  Report Type: 
  Country: None (occurrence: None)
  Receive Date: 20050120
  Receipt Date: 20050111
  Transmission Date: 20050727
  Serious: Yes (Hospitalization)
  Sender: FDA-Public Use
  Company Number: 200510142FR

PATIENT
  Age: 76 Year
  Sex: Female

DRUGS (13)
  1. DAONIL [Suspect]
     Indication: DIABETES MELLITUS NON-INSULIN-DEPENDENT
     Route: 048
     Dates: end: 20040927
  2. NOOTROPYL [Suspect]
     Route: 048
     Dates: end: 20040927
  3. MOPRAL [Suspect]
     Route: 048
     Dates: end: 20040927
  4. DURAGESIC [Suspect]
     Route: 062
     Dates: end: 20040927
  5. CELEBREX [Suspect]
     Route: 048
     Dates: end: 20040927
  6. DEROXAT [Suspect]
     Route: 048
     Dates: end: 20040927
  7. RISPERDAL [Suspect]
     Route: 048
  8. STAGID [Concomitant]
     Route: 048
  9. GLUCOR [Concomitant]
     Route: 048
  10. CHRONADALATE [Concomitant]
     Route: 048
  11. NITROGLYCERIN [Concomitant]
     Route: 062
  12. XANAX [Concomitant]
     Route: 048
  13. FOSINOPRIL SODIUM [Concomitant]
     Route: 048

REACTIONS (2)
  - ABNORMAL BEHAVIOUR [None]
  - EXTRAPYRAMIDAL DISORDER [None]
